FAERS Safety Report 18598425 (Version 2)
Quarter: 2021Q4

REPORT INFORMATION
  Report Type: Other
  Country: CA (occurrence: CA)
  Receive Date: 20201210
  Receipt Date: 20211021
  Transmission Date: 20220303
  Serious: Yes (Hospitalization, Other)
  Sender: FDA-Public Use
  Company Number: CA-CELLTRION INC.-2020CA033273

PATIENT

DRUGS (33)
  1. RITUXIMAB [Suspect]
     Active Substance: RITUXIMAB
     Indication: Stem cell transplant
     Dosage: 860 MG, 1 EVERY 1 WEEK
     Route: 042
  2. RITUXIMAB [Suspect]
     Active Substance: RITUXIMAB
     Indication: Chronic graft versus host disease
     Dosage: 1000 MG
     Route: 042
  3. METHOTREXATE [Suspect]
     Active Substance: METHOTREXATE
     Indication: Product used for unknown indication
     Dosage: 25 MG, 1 EVERY 1 WEEK
     Route: 048
  4. ACETAMINOPHEN [Concomitant]
     Active Substance: ACETAMINOPHEN
     Indication: Premedication
     Dosage: 650 MG
     Route: 048
  5. ACETAMINOPHEN [Concomitant]
     Active Substance: ACETAMINOPHEN
     Dosage: 650 MG
     Route: 048
  6. ACLASTA [Concomitant]
     Active Substance: ZOLEDRONIC ACID
     Dosage: 1 EVERY 1 YEAR
     Route: 065
  7. AMLODIPINE [Concomitant]
     Active Substance: AMLODIPINE BESYLATE
     Dosage: 10 MG, 1 EVERY 1 DAY
     Route: 048
  8. BENADRYL [Concomitant]
     Active Substance: DIPHENHYDRAMINE HYDROCHLORIDE
     Indication: Premedication
     Dosage: 50 MG
     Route: 048
  9. CALCIUM [Concomitant]
     Active Substance: CALCIUM
  10. CYCLOSPORINE [Concomitant]
     Active Substance: CYCLOSPORINE
     Route: 065
  11. DICLOFENAC [Concomitant]
     Active Substance: DICLOFENAC
     Dosage: 100 MG, 1 EVERY 1 DAY
     Route: 048
  12. DIPHENHYDRAMINE HYDROCHLORIDE [Concomitant]
     Active Substance: DIPHENHYDRAMINE HYDROCHLORIDE
     Indication: Premedication
     Dosage: 50 MG
     Route: 048
  13. ERYTHROMYCIN [Concomitant]
     Active Substance: ERYTHROMYCIN
  14. FLOVENT [Concomitant]
     Active Substance: FLUTICASONE PROPIONATE
  15. FLUCONAZOLE [Concomitant]
     Active Substance: FLUCONAZOLE
  16. FOLIC ACID [Concomitant]
     Active Substance: FOLIC ACID
     Dosage: 5 MG, 1 EVERY 1 DAY
     Route: 048
  17. HYDROXYCHLOROQUINE [Concomitant]
     Active Substance: HYDROXYCHLOROQUINE
     Dosage: 400 MG, 1 EVERY 1 DAY
     Route: 048
  18. METFORMIN [Concomitant]
     Active Substance: METFORMIN HYDROCHLORIDE
     Dosage: 2 EVERY 1 DAY
     Route: 065
  19. METHYLPREDNISOLONE [Concomitant]
     Active Substance: METHYLPREDNISOLONE
     Indication: Premedication
     Dosage: 100 MG
     Route: 042
  20. METHYLPREDNISOLONE SODIUM SUCCINATE [Concomitant]
     Active Substance: METHYLPREDNISOLONE SODIUM SUCCINATE
     Dosage: 100 MG
     Route: 042
  21. OXYGEN [Concomitant]
     Active Substance: OXYGEN
  22. PANTOPRAZOLE [Concomitant]
     Active Substance: PANTOPRAZOLE
     Dosage: 43 MG, 1 EVERY 1 DAY
     Route: 048
  23. AZITHROMYCIN ANHYDROUS [Concomitant]
     Active Substance: AZITHROMYCIN ANHYDROUS
     Dosage: 2 EVERY 1 DAYS
     Route: 065
  24. PREDNISONE [Concomitant]
     Active Substance: PREDNISONE
     Route: 065
  25. ALBUTEROL [Concomitant]
     Active Substance: ALBUTEROL
  26. SULFAMETHOXAZOLE\TRIMETHOPRIM [Concomitant]
     Active Substance: SULFAMETHOXAZOLE\TRIMETHOPRIM
     Route: 065
  27. SULFASALAZINE [Concomitant]
     Active Substance: SULFASALAZINE
     Dosage: 1500 MG, 2 EVERY 1 DAY
     Route: 048
  28. TRAMADOL [Concomitant]
     Active Substance: TRAMADOL
  29. VALACYCLOVIR [Concomitant]
     Active Substance: VALACYCLOVIR HYDROCHLORIDE
     Dosage: 2 EVERY 1 DAY
     Route: 065
  30. VALTREX [Concomitant]
     Active Substance: VALACYCLOVIR HYDROCHLORIDE
     Dosage: 500 MG, 2 EVERY 1 DAY
     Route: 065
  31. VENTOLIN [Concomitant]
     Active Substance: ALBUTEROL SULFATE
     Dosage: 800 MG
     Route: 048
  32. ZOLEDRONIC ACID [Concomitant]
     Active Substance: ZOLEDRONIC ACID
     Route: 065
  33. ZOPICLONE [Concomitant]
     Active Substance: ZOPICLONE

REACTIONS (29)
  - Alanine aminotransferase increased [Not Recovered/Not Resolved]
  - Blood pressure decreased [Not Recovered/Not Resolved]
  - Blood pressure diastolic abnormal [Not Recovered/Not Resolved]
  - Blood pressure systolic increased [Not Recovered/Not Resolved]
  - Cataract [Not Recovered/Not Resolved]
  - Chorioretinopathy [Not Recovered/Not Resolved]
  - Chronic obstructive pulmonary disease [Not Recovered/Not Resolved]
  - Conjunctival hyperaemia [Not Recovered/Not Resolved]
  - Dyspnoea exertional [Not Recovered/Not Resolved]
  - Injection site extravasation [Not Recovered/Not Resolved]
  - Oxygen saturation decreased [Not Recovered/Not Resolved]
  - Respiratory rate increased [Not Recovered/Not Resolved]
  - Retinal detachment [Not Recovered/Not Resolved]
  - Weight increased [Not Recovered/Not Resolved]
  - Arthralgia [Not Recovered/Not Resolved]
  - Blood pressure fluctuation [Not Recovered/Not Resolved]
  - Blood pressure increased [Not Recovered/Not Resolved]
  - Drug hypersensitivity [Not Recovered/Not Resolved]
  - Dyspnoea [Not Recovered/Not Resolved]
  - Fatigue [Not Recovered/Not Resolved]
  - Hot flush [Not Recovered/Not Resolved]
  - Infusion related reaction [Not Recovered/Not Resolved]
  - Oedema peripheral [Not Recovered/Not Resolved]
  - Pneumonia [Not Recovered/Not Resolved]
  - Pneumonia bacterial [Not Recovered/Not Resolved]
  - Weight decreased [Not Recovered/Not Resolved]
  - Drug ineffective [Not Recovered/Not Resolved]
  - Off label use [Not Recovered/Not Resolved]
  - Off label use [Unknown]
